FAERS Safety Report 16849499 (Version 1)
Quarter: 2019Q3

REPORT INFORMATION
  Report Type: Spontaneous
  Country: US (occurrence: US)
  Receive Date: 20190925
  Receipt Date: 20190925
  Transmission Date: 20191005
  Serious: Yes (Hospitalization, Other)
  Sender: FDA-Public Use
  Company Number: US-HIKMA PHARMACEUTICALS USA INC.-US-H14001-19-46998

PATIENT
  Age: 27 Year
  Sex: Male

DRUGS (6)
  1. OLMESARTAN MEDOXOMIL, AMLODIPINE (40/5 MG) [Concomitant]
     Indication: HYPERTENSION
     Route: 065
  2. DEXAMETHASONE. [Suspect]
     Active Substance: DEXAMETHASONE
     Indication: ASTHMA
  3. DEXAMETHASONE. [Suspect]
     Active Substance: DEXAMETHASONE
     Indication: MUSCLE STRAIN
     Dosage: RECEIVED A DEXAMETHASONE INJECTION PRIOR TO EACH EPISODE OF EXTREMITY WEAKNESS AND/OR PARALYSIS.
     Route: 065
  4. ROSUVASTATIN. [Concomitant]
     Active Substance: ROSUVASTATIN
     Indication: HYPERLIPIDAEMIA
     Route: 065
  5. FISH OIL [Concomitant]
     Active Substance: FISH OIL
     Indication: HYPERLIPIDAEMIA
     Dosage: TRIPLE-STRENGTH
     Route: 065
  6. SALBUTAMOL [Concomitant]
     Active Substance: ALBUTEROL
     Indication: ASTHMA
     Route: 065

REACTIONS (1)
  - Familial periodic paralysis [Recovered/Resolved]
